FAERS Safety Report 9679141 (Version 2)
Quarter: 2014Q1

REPORT INFORMATION
  Report Type: Report from Study
  Country: US (occurrence: US)
  Receive Date: 20131108
  Receipt Date: 20140310
  Transmission Date: 20141002
  Serious: Yes (Hospitalization)
  Sender: FDA-Public Use
  Company Number: US-ABBVIE-13P-163-1165106-00

PATIENT
  Age: 25 Year
  Sex: Male
  Weight: 68.1 kg

DRUGS (15)
  1. HUMIRA [Suspect]
     Indication: CROHN^S DISEASE
     Dosage: INITIAL STARTING DOSE, DAY 1
     Route: 058
     Dates: start: 20121113, end: 20121113
  2. HUMIRA [Suspect]
     Dosage: DAY 15
  3. LOPERAMIDE [Concomitant]
     Indication: CROHN^S DISEASE
  4. LOMOTIL [Concomitant]
     Indication: CROHN^S DISEASE
  5. ATENOLOL [Concomitant]
     Indication: CARDIAC DISORDER
  6. XANAX [Concomitant]
     Indication: POST-TRAUMATIC STRESS DISORDER
  7. XANAX [Concomitant]
     Indication: ANXIETY
  8. NEXIUM [Concomitant]
     Indication: GASTROOESOPHAGEAL REFLUX DISEASE
  9. ZOFRAN [Concomitant]
     Indication: NAUSEA
     Dosage: AS NEEDED
  10. LEVOTHYROXINE [Concomitant]
     Indication: HYPOTHYROIDISM
  11. METAMUCIL TABLETS [Concomitant]
     Indication: SUPPLEMENTATION THERAPY
  12. AMBIEN [Concomitant]
     Indication: SLEEP DISORDER THERAPY
  13. MULTIVITAMIN [Concomitant]
     Indication: VITAMIN SUPPLEMENTATION
  14. TRAMADOL [Concomitant]
     Indication: CROHN^S DISEASE
  15. TRAMADOL [Concomitant]
     Indication: PAIN

REACTIONS (14)
  - Pain [Unknown]
  - Crohn^s disease [Recovered/Resolved]
  - Crohn^s disease [Recovered/Resolved]
  - Oropharyngeal pain [Unknown]
  - Vomiting [Recovered/Resolved]
  - Diarrhoea [Recovered/Resolved]
  - Productive cough [Unknown]
  - Pyrexia [Unknown]
  - Diarrhoea [Unknown]
  - Dysphonia [Unknown]
  - Pharyngeal oedema [Unknown]
  - Rectal abscess [Recovering/Resolving]
  - Rectal abscess [Recovered/Resolved]
  - Drug effect incomplete [Unknown]
